FAERS Safety Report 8576672-7 (Version None)
Quarter: 2012Q3

REPORT INFORMATION
  Report Type: 
  Country: None (occurrence: None)
  Receive Date: 20120807
  Receipt Date: 20120806
  Transmission Date: 20120928
  Serious: Yes (Other)
  Sender: FDA-Public Use
  Company Number: DE-PFIZER INC-2012174509

PATIENT
  Age: 75 Year
  Sex: Male
  Weight: 73 kg

DRUGS (8)
  1. TEMSIROLIMUS [Suspect]
     Indication: ACUTE MYELOID LEUKAEMIA
     Dosage: 12.5 MG, CYCLIC (ON DAYS 1 AND 8)
     Dates: start: 20120627, end: 20120627
  2. AMBISOME [Concomitant]
     Indication: PULMONARY MYCOSIS
     Dosage: 210 MG, 1X/DAY
     Route: 042
     Dates: start: 20120713
  3. PIPERACILLIN AND TAZOBACTAM [Concomitant]
     Indication: NEUTROPENIC SEPSIS
  4. DAUNORUBICIN HCL [Suspect]
     Indication: ACUTE MYELOID LEUKAEMIA
     Dosage: 122.20 MG, 1X/DAY (60 MG/M2)
     Route: 042
     Dates: start: 20120630, end: 20120702
  5. CYTARABINE [Suspect]
     Indication: ACUTE MYELOID LEUKAEMIA
     Dosage: 187 MG, 1X/DAY (100 MG/M2)
     Route: 042
     Dates: start: 20120628, end: 20120704
  6. AMBISOME [Concomitant]
     Indication: NEUTROPENIC SEPSIS
  7. TEMSIROLIMUS [Suspect]
     Dosage: 12.5 MG, CYCLIC (ON DAYS 1 AND 8)
     Route: 042
     Dates: start: 20120705, end: 20120705
  8. PIPERACILLIN AND TAZOBACTAM [Concomitant]
     Indication: FEBRILE NEUTROPENIA
     Dosage: 4.5 G, 3X/DAY
     Route: 042
     Dates: start: 20120711, end: 20120718

REACTIONS (1)
  - EJECTION FRACTION DECREASED [None]
